FAERS Safety Report 7626892-0 (Version None)
Quarter: 2011Q3

REPORT INFORMATION
  Report Type: 
  Country: None (occurrence: None)
  Receive Date: 20110721
  Receipt Date: 20110713
  Transmission Date: 20111222
  Serious: Yes (Hospitalization)
  Sender: FDA-Public Use
  Company Number: US-BAYER-2011-011680

PATIENT
  Age: 16 Year
  Sex: Female
  Weight: 48 kg

DRUGS (4)
  1. PIROXICAM [Concomitant]
  2. IBUPROFEN [Concomitant]
  3. YAZ [Suspect]
     Indication: CONTRACEPTION
     Dosage: UNK
     Dates: start: 20070101, end: 20090101
  4. YAZ [Suspect]
     Indication: PREMENSTRUAL SYNDROME

REACTIONS (2)
  - PANCREATITIS ACUTE [None]
  - PAIN [None]
